FAERS Safety Report 8531562-0 (Version None)
Quarter: 2012Q3

REPORT INFORMATION
  Report Type: 
  Country: None (occurrence: None)
  Receive Date: 20120723
  Receipt Date: 20120714
  Transmission Date: 20120928
  Serious: Yes (Hospitalization)
  Sender: FDA-Public Use
  Company Number: US-ROCHE-1051978

PATIENT
  Age: 54 Year
  Sex: Male
  Weight: 63 kg

DRUGS (10)
  1. HYDROCODONE BITARTRATE [Suspect]
     Indication: PRODUCT USED FOR UNKNOWN INDICATION
     Dosage: STRENGTH: 10/325
  2. MORPHINE SULFATE [Suspect]
     Dosage: ELIXIR, DOSE: 10 MG/5ML
  3. AVASTIN [Suspect]
     Route: 042
     Dates: start: 20120613
  4. MORPHINE SULFATE [Suspect]
     Indication: PRODUCT USED FOR UNKNOWN INDICATION
  5. DOCETAXEL [Suspect]
     Route: 042
     Dates: start: 20120613
  6. DOCETAXEL [Suspect]
     Route: 042
     Dates: start: 20120229
  7. CISPLATIN [Suspect]
     Indication: HEAD AND NECK CANCER
     Dosage: OVER 1-2 HRS, DAY 1
     Route: 042
     Dates: start: 20120208
  8. AVASTIN [Suspect]
     Indication: HEAD AND NECK CANCER
     Dosage: OVER 30-90 MINS, DAY 1
     Route: 042
     Dates: start: 20120208
  9. DOCETAXEL [Suspect]
     Indication: HEAD AND NECK CANCER
     Dosage: OVER 1 HR, DAY 1
     Route: 042
     Dates: start: 20120208
  10. CISPLATIN [Suspect]
     Dosage: OVER 1-2 HRS ON DAY 1
     Route: 042
     Dates: start: 20120613

REACTIONS (3)
  - COLITIS [None]
  - MUCOSAL INFECTION [None]
  - FEBRILE NEUTROPENIA [None]
